FAERS Safety Report 25503280 (Version 1)
Quarter: 2025Q3

REPORT INFORMATION
  Report Type: Spontaneous
  Country: EU (occurrence: EU)
  Receive Date: 20250702
  Receipt Date: 20250702
  Transmission Date: 20251020
  Serious: Yes (Hospitalization)
  Sender: MYLAN
  Company Number: EU-MYLANLABS-2025M1053742

PATIENT
  Age: 42 Year
  Sex: Male

DRUGS (32)
  1. TACROLIMUS [Interacting]
     Active Substance: TACROLIMUS
     Indication: Immunosuppressant drug therapy
  2. TACROLIMUS [Interacting]
     Active Substance: TACROLIMUS
  3. TACROLIMUS [Interacting]
     Active Substance: TACROLIMUS
     Route: 065
  4. TACROLIMUS [Interacting]
     Active Substance: TACROLIMUS
     Route: 065
  5. TACROLIMUS [Interacting]
     Active Substance: TACROLIMUS
  6. TACROLIMUS [Interacting]
     Active Substance: TACROLIMUS
  7. TACROLIMUS [Interacting]
     Active Substance: TACROLIMUS
     Route: 065
  8. TACROLIMUS [Interacting]
     Active Substance: TACROLIMUS
     Route: 065
  9. PREDNISOLONE [Interacting]
     Active Substance: PREDNISOLONE
     Indication: Immunosuppressant drug therapy
  10. PREDNISOLONE [Interacting]
     Active Substance: PREDNISOLONE
  11. PREDNISOLONE [Interacting]
     Active Substance: PREDNISOLONE
     Route: 065
  12. PREDNISOLONE [Interacting]
     Active Substance: PREDNISOLONE
     Route: 065
  13. PREDNISOLONE [Interacting]
     Active Substance: PREDNISOLONE
  14. PREDNISOLONE [Interacting]
     Active Substance: PREDNISOLONE
  15. PREDNISOLONE [Interacting]
     Active Substance: PREDNISOLONE
     Route: 065
  16. PREDNISOLONE [Interacting]
     Active Substance: PREDNISOLONE
     Route: 065
  17. CINCHONIDINE\CINCHONINE\QUINIDINE\QUININE [Interacting]
     Active Substance: CINCHONIDINE\CINCHONINE\QUINIDINE\QUININE
     Indication: Malaria
  18. CINCHONIDINE\CINCHONINE\QUINIDINE\QUININE [Interacting]
     Active Substance: CINCHONIDINE\CINCHONINE\QUINIDINE\QUININE
  19. CINCHONIDINE\CINCHONINE\QUINIDINE\QUININE [Interacting]
     Active Substance: CINCHONIDINE\CINCHONINE\QUINIDINE\QUININE
     Route: 065
  20. CINCHONIDINE\CINCHONINE\QUINIDINE\QUININE [Interacting]
     Active Substance: CINCHONIDINE\CINCHONINE\QUINIDINE\QUININE
     Route: 065
  21. CINCHONIDINE\CINCHONINE\QUINIDINE\QUININE [Interacting]
     Active Substance: CINCHONIDINE\CINCHONINE\QUINIDINE\QUININE
  22. CINCHONIDINE\CINCHONINE\QUINIDINE\QUININE [Interacting]
     Active Substance: CINCHONIDINE\CINCHONINE\QUINIDINE\QUININE
  23. CINCHONIDINE\CINCHONINE\QUINIDINE\QUININE [Interacting]
     Active Substance: CINCHONIDINE\CINCHONINE\QUINIDINE\QUININE
     Route: 065
  24. CINCHONIDINE\CINCHONINE\QUINIDINE\QUININE [Interacting]
     Active Substance: CINCHONIDINE\CINCHONINE\QUINIDINE\QUININE
     Route: 065
  25. DOXYCYCLINE [Interacting]
     Active Substance: DOXYCYCLINE
     Indication: Malaria
  26. DOXYCYCLINE [Interacting]
     Active Substance: DOXYCYCLINE
  27. DOXYCYCLINE [Interacting]
     Active Substance: DOXYCYCLINE
     Route: 065
  28. DOXYCYCLINE [Interacting]
     Active Substance: DOXYCYCLINE
     Route: 065
  29. DOXYCYCLINE [Interacting]
     Active Substance: DOXYCYCLINE
  30. DOXYCYCLINE [Interacting]
     Active Substance: DOXYCYCLINE
  31. DOXYCYCLINE [Interacting]
     Active Substance: DOXYCYCLINE
     Route: 065
  32. DOXYCYCLINE [Interacting]
     Active Substance: DOXYCYCLINE
     Route: 065

REACTIONS (1)
  - Drug interaction [Unknown]
